FAERS Safety Report 5287751-4 (Version None)
Quarter: 2007Q2

REPORT INFORMATION
  Report Type: 
  Country: None (occurrence: None)
  Receive Date: 20070405
  Receipt Date: 20070323
  Transmission Date: 20071010
  Serious: Yes (Other)
  Sender: FDA-Public Use
  Company Number: JP-NOVOPROD-261750

PATIENT
  Age: 78 Year
  Sex: Female
  Weight: 41 kg

DRUGS (5)
  1. PENFILL 30R CHU [Suspect]
     Indication: DIABETES MELLITUS INSULIN-DEPENDENT
     Dosage: 28 U, QD
     Route: 058
     Dates: start: 20040802, end: 20050223
  2. MENESIT [Concomitant]
     Dosage: 300 MG, QD
     Route: 048
     Dates: start: 20050207
  3. GASMOTIN [Concomitant]
     Dosage: 15 MG, QD
     Route: 048
     Dates: start: 20050207
  4. ALANTA SP [Concomitant]
     Dosage: 1.5 G, QD
     Route: 048
     Dates: start: 20050207
  5. ALOCHINON [Concomitant]
     Dosage: 10 MG, QD
     Route: 048
     Dates: start: 20050207

REACTIONS (2)
  - HYPOGLYCAEMIA [None]
  - TREMOR [None]
